APPROVED DRUG PRODUCT: ZTLIDO
Active Ingredient: LIDOCAINE
Strength: 1.8%
Dosage Form/Route: PATCH;TOPICAL
Application: N207962 | Product #001 | TE Code: AB
Applicant: SCILEX PHARMACEUTICALS INC
Approved: Feb 28, 2018 | RLD: Yes | RS: Yes | Type: RX

PATENTS:
Patent 9925264 | Expires: May 10, 2031
Patent 11786455 | Expires: May 10, 2031
Patent 11793766 | Expires: May 10, 2031
Patent 9283174 | Expires: May 10, 2031
Patent 10765749 | Expires: May 10, 2031
Patent 9931403 | Expires: May 10, 2031
Patent 11278623 | Expires: May 10, 2031
Patent 10765640 | Expires: May 10, 2031